FAERS Safety Report 9194261 (Version 1)
Quarter: 2013Q1

REPORT INFORMATION
  Report Type: Spontaneous
  Country: FR (occurrence: FR)
  Receive Date: 20130327
  Receipt Date: 20130327
  Transmission Date: 20140127
  Serious: Yes (Hospitalization)
  Sender: FDA-Public Use
  Company Number: FR-BAXTER-2013BAX010685

PATIENT
  Age: 77 Year
  Sex: Male

DRUGS (3)
  1. GAMMAGARD [Suspect]
     Indication: WALDENSTROM^S MACROGLOBULINAEMIA
     Route: 042
     Dates: start: 20130312, end: 20130312
  2. PREVISCAN [Concomitant]
     Indication: ATRIAL FIBRILLATION
     Route: 065
     Dates: end: 20130218
  3. PREVISCAN [Concomitant]
     Route: 065
     Dates: start: 20130225

REACTIONS (4)
  - Transient ischaemic attack [Recovered/Resolved]
  - Tremor [Recovered/Resolved]
  - Hypotension [Recovered/Resolved]
  - Pyrexia [Recovered/Resolved]
